FAERS Safety Report 25607124 (Version 1)
Quarter: 2025Q3

REPORT INFORMATION
  Report Type: Spontaneous
  Country: IN (occurrence: IN)
  Receive Date: 20250725
  Receipt Date: 20250725
  Transmission Date: 20251021
  Serious: Yes (Other)
  Sender: MYLAN
  Company Number: IN-MYLANLABS-2025M1062624

PATIENT
  Age: 59 Year
  Sex: Male

DRUGS (32)
  1. GEMCITABINE [Suspect]
     Active Substance: GEMCITABINE
     Indication: Bladder transitional cell carcinoma
     Dosage: 1000 MILLIGRAM/SQ. METER, Q3W, ON DAY?1 AND DAY?8
  2. GEMCITABINE [Suspect]
     Active Substance: GEMCITABINE
     Indication: Bladder transitional cell carcinoma
     Dosage: 1000 MILLIGRAM/SQ. METER, Q3W, ON DAY?1 AND DAY?8
     Route: 065
  3. GEMCITABINE [Suspect]
     Active Substance: GEMCITABINE
     Indication: Metastasis
     Dosage: 1000 MILLIGRAM/SQ. METER, Q3W, ON DAY?1 AND DAY?8
     Route: 065
  4. GEMCITABINE [Suspect]
     Active Substance: GEMCITABINE
     Dosage: 1000 MILLIGRAM/SQ. METER, Q3W, ON DAY?1 AND DAY?8
  5. CISPLATIN [Suspect]
     Active Substance: CISPLATIN
     Indication: Bladder transitional cell carcinoma
     Dosage: 70 MILLIGRAM/SQ. METER, Q3W, ON DAY?1
  6. CISPLATIN [Suspect]
     Active Substance: CISPLATIN
     Indication: Bladder transitional cell carcinoma
     Dosage: 70 MILLIGRAM/SQ. METER, Q3W, ON DAY?1
     Route: 065
  7. CISPLATIN [Suspect]
     Active Substance: CISPLATIN
     Indication: Metastasis
     Dosage: 70 MILLIGRAM/SQ. METER, Q3W, ON DAY?1
     Route: 065
  8. CISPLATIN [Suspect]
     Active Substance: CISPLATIN
     Dosage: 70 MILLIGRAM/SQ. METER, Q3W, ON DAY?1
  9. CAPECITABINE [Suspect]
     Active Substance: CAPECITABINE
     Indication: Bladder transitional cell carcinoma
  10. CAPECITABINE [Suspect]
     Active Substance: CAPECITABINE
     Indication: Bladder transitional cell carcinoma
     Route: 065
  11. CAPECITABINE [Suspect]
     Active Substance: CAPECITABINE
     Indication: Metastasis
     Route: 065
  12. CAPECITABINE [Suspect]
     Active Substance: CAPECITABINE
  13. MITOMYCIN C [Suspect]
     Active Substance: MITOMYCIN
     Indication: Bladder transitional cell carcinoma
  14. MITOMYCIN C [Suspect]
     Active Substance: MITOMYCIN
     Indication: Bladder transitional cell carcinoma
     Route: 042
  15. MITOMYCIN C [Suspect]
     Active Substance: MITOMYCIN
     Indication: Metastasis
     Route: 042
  16. MITOMYCIN C [Suspect]
     Active Substance: MITOMYCIN
  17. PACLITAXEL [Concomitant]
     Active Substance: PACLITAXEL
     Indication: Bladder transitional cell carcinoma
     Dosage: 175 MILLIGRAM/SQ. METER, Q3W, ON DAY?1
  18. PACLITAXEL [Concomitant]
     Active Substance: PACLITAXEL
     Indication: Bladder transitional cell carcinoma
     Dosage: 175 MILLIGRAM/SQ. METER, Q3W, ON DAY?1
  19. PACLITAXEL [Concomitant]
     Active Substance: PACLITAXEL
     Indication: Metastasis
     Dosage: 175 MILLIGRAM/SQ. METER, Q3W, ON DAY?1
     Route: 065
  20. PACLITAXEL [Concomitant]
     Active Substance: PACLITAXEL
     Dosage: 175 MILLIGRAM/SQ. METER, Q3W, ON DAY?1
     Route: 065
  21. PACLITAXEL [Concomitant]
     Active Substance: PACLITAXEL
  22. PACLITAXEL [Concomitant]
     Active Substance: PACLITAXEL
  23. PACLITAXEL [Concomitant]
     Active Substance: PACLITAXEL
     Route: 065
  24. PACLITAXEL [Concomitant]
     Active Substance: PACLITAXEL
     Route: 065
  25. CARBOPLATIN [Concomitant]
     Active Substance: CARBOPLATIN
     Indication: Bladder transitional cell carcinoma
     Dosage: UNK, Q3W, ON DAY 1
  26. CARBOPLATIN [Concomitant]
     Active Substance: CARBOPLATIN
     Indication: Bladder transitional cell carcinoma
     Dosage: UNK, Q3W, ON DAY 1
  27. CARBOPLATIN [Concomitant]
     Active Substance: CARBOPLATIN
     Indication: Metastasis
     Dosage: UNK, Q3W, ON DAY 1
     Route: 065
  28. CARBOPLATIN [Concomitant]
     Active Substance: CARBOPLATIN
     Dosage: UNK, Q3W, ON DAY 1
     Route: 065
  29. CARBOPLATIN [Concomitant]
     Active Substance: CARBOPLATIN
  30. CARBOPLATIN [Concomitant]
     Active Substance: CARBOPLATIN
  31. CARBOPLATIN [Concomitant]
     Active Substance: CARBOPLATIN
     Route: 065
  32. CARBOPLATIN [Concomitant]
     Active Substance: CARBOPLATIN
     Route: 065

REACTIONS (4)
  - Drug ineffective [Unknown]
  - Disease progression [Unknown]
  - Gastrointestinal toxicity [Unknown]
  - Urogenital disorder [Unknown]
